FAERS Safety Report 5122202-1 (Version None)
Quarter: 2006Q4

REPORT INFORMATION
  Report Type: 
  Country: None (occurrence: None)
  Receive Date: 20061003
  Receipt Date: 20060915
  Transmission Date: 20070319
  Serious: Yes (Hospitalization)
  Sender: FDA-Public Use
  Company Number: 2006BI011520

PATIENT
  Age: 51 Year
  Sex: Male
  Weight: 74.8435 kg

DRUGS (2)
  1. AVONEX [Suspect]
     Indication: MULTIPLE SCLEROSIS
     Dosage: 30 UG;QW;IM
     Route: 030
     Dates: start: 20050714
  2. NITROFURANTOIN [Concomitant]

REACTIONS (3)
  - CELLULITIS [None]
  - OEDEMA PERIPHERAL [None]
  - PYREXIA [None]
